FAERS Safety Report 7973560-1 (Version None)
Quarter: 2011Q4

REPORT INFORMATION
  Report Type: 
  Country: None (occurrence: None)
  Receive Date: 20111213
  Receipt Date: 20111206
  Transmission Date: 20120403
  Serious: Yes (Other)
  Sender: FDA-Public Use
  Company Number: US-SHIRE-ALL1-2011-04815

PATIENT
  Sex: Male

DRUGS (1)
  1. LIALDA [Suspect]
     Indication: CROHN'S DISEASE
     Dosage: 1.2 G, UNKNOWN
     Route: 048
     Dates: start: 20100101

REACTIONS (2)
  - MULTIPLE SCLEROSIS [None]
  - OFF LABEL USE [None]
